FAERS Safety Report 8882251 (Version 1)
Quarter: 2012Q4

REPORT INFORMATION
  Report Type: 
  Country: AR (occurrence: AR)
  Receive Date: 20121105
  Receipt Date: 20121105
  Transmission Date: 20130627
  Serious: Yes (Other)
  Sender: FDA-Public Use
  Company Number: AR-AMGEN-ARGSP2012069695

PATIENT
  Age: 48 Year
  Sex: Female

DRUGS (2)
  1. ENBREL [Suspect]
     Indication: RHEUMATOID ARTHRITIS
     Dosage: 25 mg, 2x/week
     Dates: start: 20060405
  2. METHOTREXATE SODIUM [Suspect]
     Dosage: UNK

REACTIONS (7)
  - Cauda equina syndrome [Unknown]
  - Hepatitis [Unknown]
  - Gait disturbance [Unknown]
  - Sciatic nerve neuropathy [Unknown]
  - Arthropathy [Unknown]
  - Osteoporosis [Unknown]
  - Uveitis [Unknown]
